FAERS Safety Report 9266303 (Version 1)
Quarter: 2013Q2

REPORT INFORMATION
  Report Type: Spontaneous
  Country: KR (occurrence: KR)
  Receive Date: 20130502
  Receipt Date: 20130502
  Transmission Date: 20140414
  Serious: Yes (Death, Life-Threatening, Hospitalization)
  Sender: FDA-Public Use
  Company Number: KR-JNJFOC-20130416558

PATIENT
  Age: 68 Year
  Sex: Male

DRUGS (7)
  1. REOPRO [Suspect]
     Indication: STENT PLACEMENT
     Route: 042
  2. REOPRO [Suspect]
     Indication: STENT PLACEMENT
     Dosage: 0.125 UG/MIN
     Route: 042
  3. HEPARIN [Suspect]
     Indication: STENT PLACEMENT
     Dosage: 4000 UNITS
     Route: 042
  4. ASPIRIN [Suspect]
     Indication: MYOCARDIAL INFARCTION
     Route: 065
  5. CLOPIDOGREL [Suspect]
     Indication: MYOCARDIAL INFARCTION
     Route: 065
  6. ATORVASTATIN [Suspect]
     Indication: MYOCARDIAL INFARCTION
     Route: 048
  7. ENOXAPARIN [Suspect]
     Indication: MYOCARDIAL INFARCTION
     Route: 058

REACTIONS (3)
  - Septic shock [Fatal]
  - Pulmonary alveolar haemorrhage [Unknown]
  - Cardiogenic shock [Recovered/Resolved]
